FAERS Safety Report 25473886 (Version 1)
Quarter: 2025Q2

REPORT INFORMATION
  Report Type: Spontaneous
  Country: US (occurrence: None)
  Receive Date: 20250618
  Receipt Date: 20250618
  Transmission Date: 20250717
  Serious: Yes (Other)
  Sender: FDA-CTU
  Company Number: None

PATIENT
  Age: 38 Year
  Sex: Female
  Weight: 68.04 kg

DRUGS (8)
  1. MAVENCLAD [Suspect]
     Active Substance: CLADRIBINE
     Indication: Multiple sclerosis
  2. YumVs Melatonin Oral Tablet Chewabl [Concomitant]
  3. Advanced Collagen Oral Tablet [Concomitant]
  4. Multivitamin Adults Oral Tablet [Concomitant]
  5. Vitamin C Plus Oral Tablet 1000 MG [Concomitant]
  6. Complete Omega Oral Capsule [Concomitant]
  7. Vitamin D-3 Oral Capsule 25 MCG [Concomitant]
  8. B-12 Oral Capsule 1000 MCG [Concomitant]

REACTIONS (6)
  - Pain [None]
  - Sleep disorder [None]
  - Fatigue [None]
  - Headache [None]
  - Nausea [None]
  - Multiple sclerosis relapse [None]

NARRATIVE: CASE EVENT DATE: 20250617
